FAERS Safety Report 18582782 (Version 5)
Quarter: 2021Q2

REPORT INFORMATION
  Report Type: Report from Study
  Country: US (occurrence: US)
  Receive Date: 20201205
  Receipt Date: 20210416
  Transmission Date: 20210717
  Serious: Yes (Hospitalization, Other)
  Sender: FDA-Public Use
  Company Number: NVSC2020US319542

PATIENT
  Sex: Female

DRUGS (1)
  1. COSENTYX [Suspect]
     Active Substance: SECUKINUMAB
     Indication: PSORIASIS
     Dosage: UNK
     Route: 065

REACTIONS (10)
  - Product dose omission issue [Unknown]
  - Dyspnoea [Unknown]
  - Gait inability [Unknown]
  - COVID-19 [Recovered/Resolved]
  - PO2 abnormal [Unknown]
  - Psoriatic arthropathy [Unknown]
  - Psoriasis [Unknown]
  - Pruritus [Unknown]
  - Arthritis [Unknown]
  - Illness [Unknown]
